FAERS Safety Report 10519557 (Version 1)
Quarter: 2014Q4

REPORT INFORMATION
  Report Type: Spontaneous
  Country: CN (occurrence: CN)
  Receive Date: 20141015
  Receipt Date: 20141015
  Transmission Date: 20150528
  Serious: Yes (Other)
  Sender: FDA-Public Use
  Company Number: CN-ASTELLAS-2014US014793

PATIENT
  Age: 25 Year
  Sex: Male

DRUGS (1)
  1. VESICARE [Suspect]
     Active Substance: SOLIFENACIN SUCCINATE
     Indication: POLLAKIURIA
     Dosage: UNK, UNKNOWN FREQ.
     Route: 048
     Dates: start: 20140929

REACTIONS (3)
  - Nephrotic syndrome [Unknown]
  - Dysuria [Unknown]
  - Vesicoureteric reflux [Unknown]

NARRATIVE: CASE EVENT DATE: 201410
